FAERS Safety Report 12478443 (Version 4)
Quarter: 2016Q3

REPORT INFORMATION
  Report Type: Report from Study
  Country: AU (occurrence: AU)
  Receive Date: 20160618
  Receipt Date: 20160726
  Transmission Date: 20161109
  Serious: Yes (Death, Life-Threatening)
  Sender: FDA-Public Use
  Company Number: AU-JNJFOC-20160614087

PATIENT
  Age: 82 Year
  Weight: 76.3 kg

DRUGS (5)
  1. IBRUTINIB [Suspect]
     Active Substance: IBRUTINIB
     Indication: DIFFUSE LARGE B-CELL LYMPHOMA
     Route: 048
     Dates: start: 20160611, end: 20160619
  2. VINCRISTINE [Suspect]
     Active Substance: VINCRISTINE
     Indication: DIFFUSE LARGE B-CELL LYMPHOMA
     Dosage: EVERY 21 DAYS
     Route: 042
     Dates: start: 20160611, end: 20160611
  3. PREDNISONE. [Suspect]
     Active Substance: PREDNISONE
     Indication: DIFFUSE LARGE B-CELL LYMPHOMA
     Route: 048
     Dates: start: 20160611, end: 20160611
  4. DOXORUBICIN [Suspect]
     Active Substance: DOXORUBICIN
     Indication: DIFFUSE LARGE B-CELL LYMPHOMA
     Dosage: EVERY 21 DAYS
     Route: 042
     Dates: start: 20160611, end: 20160611
  5. CYCLOPHOSPHAMIDE. [Suspect]
     Active Substance: CYCLOPHOSPHAMIDE
     Indication: DIFFUSE LARGE B-CELL LYMPHOMA
     Dosage: EVERY 21 DAYS
     Route: 042
     Dates: start: 20160611, end: 20160611

REACTIONS (20)
  - Arrhythmia [Not Recovered/Not Resolved]
  - Blood chloride decreased [None]
  - Fall [None]
  - Atrial fibrillation [None]
  - Blood urea increased [None]
  - Blood calcium decreased [None]
  - Mucosal inflammation [None]
  - Pleural effusion [None]
  - Blood magnesium increased [None]
  - Tendon rupture [None]
  - Glomerular filtration rate decreased [None]
  - Delirium [None]
  - Febrile neutropenia [None]
  - Cardiac arrest [Fatal]
  - Blood phosphorus increased [None]
  - Atelectasis [None]
  - Acute pulmonary oedema [None]
  - Blood albumin decreased [None]
  - Pulmonary congestion [None]
  - Myocardial infarction [None]

NARRATIVE: CASE EVENT DATE: 20160614
